FAERS Safety Report 5724823-1 (Version None)
Quarter: 2008Q2

REPORT INFORMATION
  Report Type: 
  Country: None (occurrence: None)
  Receive Date: 20080430
  Receipt Date: 20080430
  Transmission Date: 20081010
  Serious: Yes (Hospitalization)
  Sender: FDA-Public Use
  Company Number: None

PATIENT
  Age: 63 Year
  Sex: Male

DRUGS (2)
  1. BEVACIZUMAB [Suspect]
     Dosage: 350 MG OTHER IV
     Route: 042
     Dates: start: 20070611, end: 20080325
  2. IRINOTECAN HCL [Suspect]
     Dosage: 350 MG OTHER IV
     Route: 042
     Dates: start: 20080110, end: 20080325

REACTIONS (3)
  - FEBRILE NEUTROPENIA [None]
  - LEUKOPENIA [None]
  - THROMBOCYTOPENIA [None]
